FAERS Safety Report 16046944 (Version 1)
Quarter: 2019Q1

REPORT INFORMATION
  Report Type: Spontaneous
  Country: US (occurrence: US)
  Receive Date: 20190307
  Receipt Date: 20190307
  Transmission Date: 20190418
  Serious: No
  Sender: FDA-Public Use
  Company Number: US-PFIZER INC-2019095115

PATIENT
  Age: 81 Year
  Sex: Female

DRUGS (4)
  1. LORABID [Suspect]
     Active Substance: LORACARBEF
     Dosage: UNK
  2. IODINE. [Suspect]
     Active Substance: IODINE
     Route: 061
  3. OXAPROZIN. [Suspect]
     Active Substance: OXAPROZIN
     Dosage: UNK
  4. IODIXANOL. [Suspect]
     Active Substance: IODIXANOL
     Dosage: UNK

REACTIONS (2)
  - Drug hypersensitivity [Unknown]
  - Rash [Unknown]
